FAERS Safety Report 8154761 (Version 2)
Quarter: 2013Q4

REPORT INFORMATION
  Report Type: Spontaneous
  Country: GB (occurrence: GB)
  Receive Date: 20110923
  Receipt Date: 20131101
  Transmission Date: 20140711
  Serious: Yes (Other)
  Sender: FDA-Public Use
  Company Number: GB-WATSON-2011-14577

PATIENT
  Age: 76 Year
  Sex: Female
  Weight: 67 kg

DRUGS (28)
  1. SIMVASTATIN (UNKNOWN) [Suspect]
     Indication: PRODUCT USED FOR UNKNOWN INDICATION
     Dosage: UNK
     Route: 065
     Dates: start: 20110901
  2. SIMVASTATIN (UNKNOWN) [Suspect]
     Dosage: UNK
     Route: 065
     Dates: start: 20110725, end: 20110822
  3. BECLOMETASONE [Concomitant]
     Indication: PRODUCT USED FOR UNKNOWN INDICATION
     Dosage: UNK
     Route: 065
     Dates: start: 20110614
  4. BECLOMETASONE [Concomitant]
     Dosage: UNK
     Route: 065
     Dates: start: 20110614
  5. CALCICHEW D3 [Concomitant]
     Indication: PRODUCT USED FOR UNKNOWN INDICATION
     Dosage: UNK
     Route: 065
     Dates: start: 20110519
  6. CLOPIDOGREL [Concomitant]
     Indication: PRODUCT USED FOR UNKNOWN INDICATION
     Dosage: UNK
     Route: 065
     Dates: start: 20110617, end: 20110717
  7. DOCUSATE SODIUM [Concomitant]
     Indication: PRODUCT USED FOR UNKNOWN INDICATION
     Dosage: UNK
     Route: 065
     Dates: start: 20110519
  8. DOCUSATE SODIUM [Concomitant]
     Dosage: UNK
     Route: 065
     Dates: start: 20110718
  9. GABAPENTIN [Concomitant]
     Indication: PRODUCT USED FOR UNKNOWN INDICATION
     Dosage: UNK
     Route: 065
     Dates: start: 20110519
  10. GABAPENTIN [Concomitant]
     Dosage: UNK
     Route: 065
     Dates: start: 20110718
  11. HIDROXOCOBALAMINA [Concomitant]
     Indication: PRODUCT USED FOR UNKNOWN INDICATION
     Dosage: UNK
     Route: 065
     Dates: start: 20110622, end: 20110817
  12. HIDROXOCOBALAMINA [Concomitant]
     Dosage: UNK
     Route: 065
     Dates: start: 20110720, end: 20110721
  13. HIDROXOCOBALAMINA [Concomitant]
     Dosage: UNK
     Route: 065
     Dates: start: 20110816, end: 20110817
  14. HYPROMELLOSE [Concomitant]
     Indication: PRODUCT USED FOR UNKNOWN INDICATION
     Dosage: UNK
     Route: 065
     Dates: start: 20110519
  15. HYPROMELLOSE [Concomitant]
     Dosage: UNK
     Route: 065
     Dates: start: 20110718
  16. LOFEPRAMINE [Concomitant]
     Indication: PRODUCT USED FOR UNKNOWN INDICATION
     Dosage: UNK
     Route: 065
     Dates: start: 20110418, end: 20110717
  17. LOFEPRAMINE [Concomitant]
     Dates: start: 20110418, end: 20110717
  18. MEPTAZINOL [Concomitant]
     Indication: PRODUCT USED FOR UNKNOWN INDICATION
     Dosage: UNK
     Route: 065
     Dates: start: 20110815
  19. OMEPRAZOLE [Concomitant]
     Indication: PRODUCT USED FOR UNKNOWN INDICATION
     Dosage: UNK
     Route: 065
     Dates: start: 20110519
  20. OMEPRAZOLE [Concomitant]
     Dosage: UNK
     Route: 065
     Dates: start: 20110718
  21. PARACETAMOL [Concomitant]
     Indication: PRODUCT USED FOR UNKNOWN INDICATION
     Dosage: UNK
     Route: 065
     Dates: start: 20110614, end: 20110626
  22. RAMIPRIL [Concomitant]
     Indication: PRODUCT USED FOR UNKNOWN INDICATION
     Dosage: UNK
     Route: 065
     Dates: start: 20110519
  23. RAMIPRIL [Concomitant]
     Dosage: UNK
     Route: 065
     Dates: start: 20110718
  24. SLOZEM [Concomitant]
     Indication: PRODUCT USED FOR UNKNOWN INDICATION
     Dosage: UNK
     Route: 065
     Dates: start: 20110519
  25. SLOZEM [Concomitant]
     Dosage: UNK
     Route: 065
     Dates: start: 20110718
  26. TRIMETHOPRIM [Concomitant]
     Indication: PRODUCT USED FOR UNKNOWN INDICATION
     Dosage: UNK
     Route: 065
     Dates: start: 20110608, end: 20110615
  27. ZOPICLONE [Concomitant]
     Indication: PRODUCT USED FOR UNKNOWN INDICATION
     Dosage: UNK
     Route: 065
     Dates: start: 20110519
  28. ZOPICLONE [Concomitant]
     Dosage: UNK
     Route: 065
     Dates: start: 20110718

REACTIONS (1)
  - Contusion [Recovering/Resolving]
